FAERS Safety Report 5730655-0 (Version None)
Quarter: 2008Q2

REPORT INFORMATION
  Report Type: 
  Country: None (occurrence: None)
  Receive Date: 20080505
  Receipt Date: 20080505
  Transmission Date: 20081010
  Serious: No
  Sender: FDA-Public Use
  Company Number: None

PATIENT
  Age: 52 Year
  Sex: Female
  Weight: 59.4212 kg

DRUGS (3)
  1. LYRICA [Suspect]
     Indication: INJURY
     Dosage: BID PO
     Route: 048
     Dates: start: 20060808, end: 20060815
  2. LYRICA [Suspect]
     Indication: NEUROPATHY PERIPHERAL
     Dosage: BID PO
     Route: 048
     Dates: start: 20060808, end: 20060815
  3. LYRICA [Suspect]
     Indication: POST PROCEDURAL COMPLICATION
     Dosage: BID PO
     Route: 048
     Dates: start: 20060808, end: 20060815

REACTIONS (1)
  - PETECHIAE [None]
